FAERS Safety Report 8658157 (Version 4)
Quarter: 2013Q1

REPORT INFORMATION
  Report Type: Spontaneous
  Country: US (occurrence: US)
  Receive Date: 20120710
  Receipt Date: 20130123
  Transmission Date: 20140127
  Serious: Yes (Other)
  Sender: FDA-Public Use
  Company Number: US-B.I. PHARMACEUTICALS,INC./RIDGEFIELD-2012-BP-15092BP

PATIENT
  Age: 68 None
  Sex: Female

DRUGS (3)
  1. PRADAXA [Suspect]
     Indication: ATRIAL FIBRILLATION
     Dosage: 300 MG
     Route: 048
     Dates: start: 201205
  2. CRESTOR [Concomitant]
     Indication: BLOOD CHOLESTEROL INCREASED
     Dosage: 5 MG
     Route: 048
     Dates: start: 201205
  3. SOLATOL HCL [Concomitant]
     Indication: ATRIAL FIBRILLATION
     Dosage: 160 MG
     Route: 048
     Dates: start: 201205

REACTIONS (16)
  - Transient ischaemic attack [Unknown]
  - Thirst [Not Recovered/Not Resolved]
  - Dizziness [Not Recovered/Not Resolved]
  - Asthenia [Not Recovered/Not Resolved]
  - Polydipsia [Not Recovered/Not Resolved]
  - Pollakiuria [Not Recovered/Not Resolved]
  - Arthralgia [Not Recovered/Not Resolved]
  - Contusion [Not Recovered/Not Resolved]
  - Rectal haemorrhage [Not Recovered/Not Resolved]
  - Vertigo [Recovered/Resolved]
  - Tinnitus [Recovered/Resolved]
  - Rash [Not Recovered/Not Resolved]
  - Back pain [Recovered/Resolved]
  - Abdominal pain upper [Recovered/Resolved]
  - Abdominal discomfort [Recovered/Resolved]
  - Speech disorder [Not Recovered/Not Resolved]
